FAERS Safety Report 6684437-6 (Version None)
Quarter: 2010Q2

REPORT INFORMATION
  Report Type: 
  Country: None (occurrence: None)
  Receive Date: 20100416
  Receipt Date: 20100412
  Transmission Date: 20101027
  Serious: Yes (Other)
  Sender: FDA-Public Use
  Company Number: GB-PURDUE-DEU-2010-0005851

PATIENT
  Age: 44 Year
  Sex: Female

DRUGS (8)
  1. TRAMADOL HCL [Suspect]
     Indication: DRUG DIVERSION
  2. MORPHINE SULFATE [Suspect]
     Indication: DRUG DIVERSION
  3. OXYCODONE HCL [Suspect]
     Indication: DRUG ABUSE
  4. DIAZEPAM [Suspect]
     Indication: DRUG ABUSE
  5. LORAZEPAM [Suspect]
     Indication: DRUG ABUSE
  6. MIDAZOLAM HCL [Suspect]
     Indication: DRUG ABUSE
  7. DIAMORPHINE [Concomitant]
     Indication: DRUG ABUSE
  8. MEPERIDINE HCL [Concomitant]
     Indication: DRUG ABUSE

REACTIONS (4)
  - ABNORMAL BEHAVIOUR [None]
  - DRUG ABUSE [None]
  - DRUG DEPENDENCE [None]
  - DRUG DIVERSION [None]
